FAERS Safety Report 7822001-3 (Version None)
Quarter: 2011Q4

REPORT INFORMATION
  Report Type: 
  Country: None (occurrence: None)
  Receive Date: 20111018
  Receipt Date: 20111011
  Transmission Date: 20120403
  Serious: Yes (Other)
  Sender: FDA-Public Use
  Company Number: PHEH2009US09109

PATIENT
  Sex: Female

DRUGS (5)
  1. GLUCOSAMINE [Concomitant]
  2. NEXIUM [Concomitant]
  3. ZOMETA [Suspect]
  4. ZOLOFT [Concomitant]
  5. ARANESP [Concomitant]

REACTIONS (15)
  - DYSPNOEA [None]
  - RENAL FAILURE [None]
  - ANXIETY [None]
  - MOUTH ULCERATION [None]
  - EXPOSED BONE IN JAW [None]
  - CARDIAC FAILURE CONGESTIVE [None]
  - GENERAL PHYSICAL HEALTH DETERIORATION [None]
  - PRIMARY SEQUESTRUM [None]
  - ANAEMIA [None]
  - OSTEONECROSIS OF JAW [None]
  - INFECTION [None]
  - PAIN [None]
  - MULTIPLE MYELOMA [None]
  - ORAL PAIN [None]
  - DEFORMITY [None]
